FAERS Safety Report 10641333 (Version 3)
Quarter: 2015Q1

REPORT INFORMATION
  Report Type: Spontaneous
  Country: US (occurrence: US)
  Receive Date: 20141209
  Receipt Date: 20150330
  Transmission Date: 20150720
  Serious: Yes (Other)
  Sender: FDA-Public Use
  Company Number: US-BAYER-2014-181709

PATIENT
  Age: 29 Year
  Sex: Female
  Weight: 47.62 kg

DRUGS (1)
  1. MIRENA [Suspect]
     Active Substance: LEVONORGESTREL
     Indication: CONTRACEPTION
     Dosage: 20 MCG/24HR, CONT
     Route: 015
     Dates: start: 20141110, end: 20141201

REACTIONS (2)
  - Post procedural haemorrhage [Recovered/Resolved]
  - Device expulsion [None]

NARRATIVE: CASE EVENT DATE: 20141110
